FAERS Safety Report 4721790-4 (Version None)
Quarter: 2005Q3

REPORT INFORMATION
  Report Type: 
  Country: None (occurrence: None)
  Receive Date: 20050721
  Receipt Date: 20050415
  Transmission Date: 20060218
  Serious: No
  Sender: FDA-Public Use
  Company Number: US-BRISTOL-MYERS SQUIBB COMPANY-12935508

PATIENT

DRUGS (2)
  1. COUMADIN [Suspect]
     Indication: DEEP VEIN THROMBOSIS
  2. HEPARIN [Concomitant]
     Indication: COAGULOPATHY
     Dosage: SHOTS IN ABDOMEN 3 TIMES A DAY
     Route: 033

REACTIONS (1)
  - DRUG EFFECT DECREASED [None]
